FAERS Safety Report 18708047 (Version 1)
Quarter: 2021Q1

REPORT INFORMATION
  Report Type: Spontaneous
  Country: CA (occurrence: CA)
  Receive Date: 20210106
  Receipt Date: 20210106
  Transmission Date: 20210419
  Serious: Yes (Hospitalization, Other)
  Sender: FDA-Public Use
  Company Number: CA-ROCHE-2744496

PATIENT
  Age: 31 Year
  Sex: Female
  Weight: 50 kg

DRUGS (8)
  1. CELEBREX [Concomitant]
     Active Substance: CELECOXIB
  2. RITUXAN [Suspect]
     Active Substance: RITUXIMAB
     Indication: STILL^S DISEASE
     Dosage: ON DAY 1 AND ON DAY 15
     Route: 042
     Dates: start: 20201103, end: 20201103
  3. ACTEMRA [Concomitant]
     Active Substance: TOCILIZUMAB
     Indication: DRUG HYPERSENSITIVITY
     Route: 065
  4. BENADRYL [Concomitant]
     Active Substance: DIPHENHYDRAMINE HYDROCHLORIDE
  5. RITUXAN [Suspect]
     Active Substance: RITUXIMAB
     Indication: RHEUMATOID ARTHRITIS
     Route: 041
     Dates: start: 20200418
  6. TACROLIMUS. [Concomitant]
     Active Substance: TACROLIMUS
     Indication: RHEUMATOID ARTHRITIS
     Dates: start: 2016
  7. RITUXAN [Suspect]
     Active Substance: RITUXIMAB
     Indication: SJOGREN^S SYNDROME
     Route: 042
     Dates: end: 202010
  8. TACROLIMUS. [Concomitant]
     Active Substance: TACROLIMUS
     Indication: SJOGREN^S SYNDROME

REACTIONS (8)
  - Obstructive airways disorder [Unknown]
  - Serum sickness [Recovered/Resolved]
  - Eye disorder [Unknown]
  - Rash [Recovered/Resolved]
  - Anaphylactic reaction [Unknown]
  - Joint swelling [Not Recovered/Not Resolved]
  - Arthralgia [Recovered/Resolved]
  - C-reactive protein increased [Recovered/Resolved]

NARRATIVE: CASE EVENT DATE: 20201103
